FAERS Safety Report 4498883-2 (Version None)
Quarter: 2004Q4

REPORT INFORMATION
  Report Type: 
  Country: None (occurrence: None)
  Receive Date: 20041111
  Receipt Date: 20041105
  Transmission Date: 20050328
  Serious: Yes (Death, Hospitalization)
  Sender: FDA-Public Use
  Company Number: US-AMGEN-US095828

PATIENT
  Age: 53 Year
  Sex: Male
  Weight: 109 kg

DRUGS (4)
  1. EPOGEN [Suspect]
     Indication: DIALYSIS
     Dates: start: 20000101
  2. RENAGEL [Concomitant]
  3. NEPHRO-VITE [Concomitant]
  4. DIGOXIN [Concomitant]

REACTIONS (4)
  - GENERAL PHYSICAL HEALTH DETERIORATION [None]
  - HAEMATOCRIT DECREASED [None]
  - MULTI-ORGAN FAILURE [None]
  - THERAPEUTIC RESPONSE DECREASED [None]
